FAERS Safety Report 13711520 (Version 2)
Quarter: 2017Q3

REPORT INFORMATION
  Report Type: Spontaneous
  Country: RU (occurrence: RU)
  Receive Date: 20170703
  Receipt Date: 20170814
  Transmission Date: 20171127
  Serious: Yes (Life-Threatening, Hospitalization, Other)
  Sender: FDA-Public Use
  Company Number: RU-ASTRAZENECA-2017SE67539

PATIENT
  Age: 48 Year
  Sex: Male
  Weight: 60 kg

DRUGS (5)
  1. ATORVASTATIN [Concomitant]
     Active Substance: ATORVASTATIN
  2. CONCOR [Concomitant]
     Active Substance: BISOPROLOL FUMARATE
  3. BRILINTA [Suspect]
     Active Substance: TICAGRELOR
     Indication: MYOCARDIAL INFARCTION
     Route: 048
     Dates: start: 201605
  4. CARDIOMAGNYL [Concomitant]
     Active Substance: ASPIRIN\MAGNESIUM HYDROXIDE
  5. PREDUCTAL A [Concomitant]

REACTIONS (5)
  - Myocardial infarction [Recovered/Resolved]
  - Product use issue [Unknown]
  - Large intestine polyp [Unknown]
  - Off label use [Unknown]
  - Gastrointestinal haemorrhage [Recovered/Resolved]

NARRATIVE: CASE EVENT DATE: 20160610
